FAERS Safety Report 23334364 (Version 1)
Quarter: 2023Q4

REPORT INFORMATION
  Report Type: Report from Study
  Country: NL (occurrence: NL)
  Receive Date: 20231223
  Receipt Date: 20231223
  Transmission Date: 20240110
  Serious: Yes (Other)
  Sender: FDA-Public Use
  Company Number: NL-VER-202300100

PATIENT
  Age: 65 Year
  Sex: Male

DRUGS (2)
  1. TRIPTORELIN PAMOATE [Suspect]
     Active Substance: TRIPTORELIN PAMOATE
     Indication: Prostate cancer
     Dosage: ??1.00 X PER 6 MAANDEN (22.5 MG,6 M)
     Route: 030
     Dates: start: 20231213
  2. TRIPTORELIN PAMOATE [Suspect]
     Active Substance: TRIPTORELIN PAMOATE
     Indication: Prostate cancer
     Dosage: 1.00 X PER 6 MAANDEN (22.5 MG,6 M)
     Route: 030
     Dates: start: 20230614

REACTIONS (1)
  - Metastases to lung [Not Recovered/Not Resolved]
